FAERS Safety Report 22261434 (Version 3)
Quarter: 2023Q2

REPORT INFORMATION
  Report Type: Report from Study
  Country: US (occurrence: US)
  Receive Date: 20230427
  Receipt Date: 20230504
  Transmission Date: 20230721
  Serious: Yes (Other)
  Sender: FDA-Public Use
  Company Number: US-SEATTLE GENETICS-2023SGN04096

PATIENT
  Sex: Female

DRUGS (2)
  1. TUCATINIB [Suspect]
     Active Substance: TUCATINIB
     Indication: Breast cancer female
     Dosage: UNK
     Route: 065
  2. ELIQUIS [Suspect]
     Active Substance: APIXABAN
     Indication: Deep vein thrombosis
     Route: 065

REACTIONS (7)
  - Deep vein thrombosis [Unknown]
  - Skin discolouration [Unknown]
  - Insomnia [Unknown]
  - Anxiety [Unknown]
  - Drug interaction [Unknown]
  - Feeling abnormal [Unknown]
  - Hypoaesthesia [Unknown]
